FAERS Safety Report 6387189-2 (Version None)
Quarter: 2009Q4

REPORT INFORMATION
  Report Type: 
  Country: None (occurrence: None)
  Receive Date: 20091002
  Receipt Date: 20090928
  Transmission Date: 20100525
  Serious: Yes (Life-Threatening)
  Sender: FDA-Public Use
  Company Number: PHHO2009US09804

PATIENT
  Sex: Male

DRUGS (3)
  1. NEORAL [Suspect]
     Dosage: 75 MG, BID
     Route: 048
     Dates: start: 20060606
  2. RAD 666 RAD+TAB [Suspect]
     Indication: ORGAN TRANSPLANT
     Dosage: 3 MG
     Route: 048
     Dates: start: 20050627
  3. PREDNISOLONE [Suspect]
     Indication: ORGAN TRANSPLANT
     Dosage: 10 MG, QD
     Route: 048
     Dates: start: 20060605

REACTIONS (3)
  - BASAL CELL CARCINOMA [None]
  - DEBRIDEMENT [None]
  - MICROGRAPHIC SKIN SURGERY [None]
